FAERS Safety Report 7865153-1 (Version None)
Quarter: 2011Q4

REPORT INFORMATION
  Report Type: 
  Country: None (occurrence: None)
  Receive Date: 20111028
  Receipt Date: 20101018
  Transmission Date: 20120403
  Serious: No
  Sender: FDA-Public Use
  Company Number: US-GLAXOSMITHKLINE-A0888148A

PATIENT
  Age: 65 Year
  Sex: Female

DRUGS (7)
  1. SPIRIVA [Concomitant]
  2. CARDIZEM [Concomitant]
  3. ADVAIR DISKUS 100/50 [Suspect]
     Indication: CHRONIC OBSTRUCTIVE PULMONARY DISEASE
     Dosage: 1PUFF TWICE PER DAY
     Route: 055
     Dates: start: 20050103
  4. DIGOXIN [Concomitant]
  5. XANAX [Concomitant]
  6. PREDNISONE [Concomitant]
  7. ALLEGRA D 24 HOUR [Concomitant]

REACTIONS (6)
  - CHRONIC OBSTRUCTIVE PULMONARY DISEASE [None]
  - AGEUSIA [None]
  - HYPOPNOEA [None]
  - ASTHENIA [None]
  - DECREASED APPETITE [None]
  - WEIGHT DECREASED [None]
